FAERS Safety Report 4977885-3 (Version None)
Quarter: 2006Q2

REPORT INFORMATION
  Report Type: 
  Country: None (occurrence: None)
  Receive Date: 20060420
  Receipt Date: 20060410
  Transmission Date: 20061013
  Serious: Yes (Hospitalization)
  Sender: FDA-Public Use
  Company Number: IE-AVENTIS-200612174EU

PATIENT
  Age: 66 Year
  Sex: Male
  Weight: 64 kg

DRUGS (9)
  1. ENOXAPARIN SODIUM [Suspect]
     Indication: MYOCARDIAL INFARCTION
     Route: 058
     Dates: start: 20051202, end: 20051209
  2. PLAVIX [Suspect]
     Indication: MYOCARDIAL INFARCTION
     Route: 048
     Dates: start: 20051205, end: 20051201
  3. PLAVIX [Suspect]
     Route: 048
     Dates: start: 20051201, end: 20051209
  4. ASPIRIN [Suspect]
     Indication: MYOCARDIAL INFARCTION
     Route: 048
     Dates: start: 20051201, end: 20051209
  5. PULMICORT [Concomitant]
     Indication: CHRONIC OBSTRUCTIVE PULMONARY DISEASE
     Route: 055
     Dates: start: 20051201
  6. ZESTRIL [Concomitant]
     Indication: HYPERTENSION
     Route: 048
     Dates: start: 20051201
  7. FRUSEMIDE [Concomitant]
     Indication: HYPERTENSION
     Route: 048
     Dates: start: 20051201
  8. SEROQUEL [Concomitant]
     Indication: DEPRESSION
     Route: 048
     Dates: start: 20051201
  9. MOTILIUM [Concomitant]
     Indication: NAUSEA
     Route: 048
     Dates: start: 20051201

REACTIONS (2)
  - ASPIRATION [None]
  - HAEMATEMESIS [None]
